APPROVED DRUG PRODUCT: JAKAFI
Active Ingredient: RUXOLITINIB PHOSPHATE
Strength: EQ 20MG BASE
Dosage Form/Route: TABLET;ORAL
Application: N202192 | Product #004
Applicant: INCYTE CORP
Approved: Nov 16, 2011 | RLD: Yes | RS: No | Type: RX

PATENTS:
Patent 8822481 | Expires: Jun 12, 2028
Patent 8829013 | Expires: Jun 12, 2028
Patent 8829013 | Expires: Jun 12, 2028
Patent 10016429 | Expires: Jun 12, 2028
Patent 9079912 | Expires: Dec 12, 2026
Patent 9079912 | Expires: Dec 12, 2026
Patent 9079912 | Expires: Dec 12, 2026
Patent 8822481 | Expires: Jun 12, 2028
Patent 8822481 | Expires: Jun 12, 2028
Patent 8822481 | Expires: Jun 12, 2028
Patent 9814722 | Expires: Dec 12, 2026
Patent 8829013 | Expires: Jun 12, 2028
Patent 8829013 | Expires: Jun 12, 2028
Patent 7598257 | Expires: Dec 24, 2027
Patent 7598257 | Expires: Dec 24, 2027
Patent 8822481 | Expires: Jun 12, 2028
Patent 9079912 | Expires: Dec 12, 2026
Patent 10016429 | Expires: Jun 12, 2028
Patent 9814722 | Expires: Dec 12, 2026
Patent 8415362 | Expires: Dec 24, 2027
Patent 8722693 | Expires: Jun 12, 2028
Patent 7598257*PED | Expires: Jun 24, 2028
Patent 8415362*PED | Expires: Jun 24, 2028
Patent 8722693*PED | Expires: Dec 12, 2028
Patent 8822481*PED | Expires: Dec 12, 2028
Patent 8829013*PED | Expires: Dec 12, 2028
Patent 9079912*PED | Expires: Jun 12, 2027
Patent 10016429*PED | Expires: Dec 12, 2028
Patent 9814722*PED | Expires: Jun 12, 2027

EXCLUSIVITY:
Code: PED | Date: Nov 24, 2026
Code: PED | Date: Jun 19, 2026
Code: PED | Date: Mar 22, 2029
Code: M-285 | Date: Dec 19, 2025
Code: ODE-238 | Date: May 24, 2026
Code: ODE-373 | Date: Sep 22, 2028